FAERS Safety Report 22077935 (Version 2)
Quarter: 2023Q1

REPORT INFORMATION
  Report Type: Spontaneous
  Country: GB (occurrence: GB)
  Receive Date: 20230309
  Receipt Date: 20230330
  Transmission Date: 20230418
  Serious: Yes (Hospitalization, Other)
  Sender: FDA-Public Use
  Company Number: GB-JNJFOC-20221233728

PATIENT
  Age: 60 Year
  Sex: Female

DRUGS (3)
  1. AMLODIPINE [Suspect]
     Active Substance: AMLODIPINE BESYLATE
     Indication: Hypertension
     Route: 065
  2. PEMBROLIZUMAB [Suspect]
     Active Substance: PEMBROLIZUMAB
     Indication: Product used for unknown indication
     Route: 065
  3. STELARA [Suspect]
     Active Substance: USTEKINUMAB
     Indication: Crohn^s disease
     Dosage: DELIVERY START DATE: 28-JUN-2022
     Route: 058

REACTIONS (8)
  - Malignant melanoma [Recovering/Resolving]
  - Pneumonitis [Recovering/Resolving]
  - Colitis [Recovering/Resolving]
  - Haematochezia [Unknown]
  - Crohn^s disease [Not Recovered/Not Resolved]
  - Diarrhoea [Unknown]
  - Alopecia [Recovering/Resolving]
  - Off label use [Unknown]

NARRATIVE: CASE EVENT DATE: 20230103
